FAERS Safety Report 6301086-X (Version None)
Quarter: 2009Q3

REPORT INFORMATION
  Report Type: 
  Country: None (occurrence: None)
  Receive Date: 20090807
  Receipt Date: 20090730
  Transmission Date: 20100115
  Serious: Yes (Other)
  Sender: FDA-Public Use
  Company Number: PHHY2009BE31811

PATIENT
  Age: 58 Year
  Sex: Male

DRUGS (9)
  1. RASILEZ [Suspect]
     Indication: HYPERTENSION
     Dosage: 150 MG DAILY
     Route: 048
  2. RASILEZ [Suspect]
     Dosage: 300 MG
     Route: 048
  3. ALDACTAZINE [Concomitant]
  4. CORUNO [Concomitant]
  5. CYMBALTA [Concomitant]
  6. EMCONCOR [Concomitant]
  7. COVERAM (PERINDOPRIL ARGININE/AMLODIPINE BESILATE) [Concomitant]
  8. COVERSYL [Concomitant]
  9. MICARDIS HCT [Concomitant]

REACTIONS (9)
  - BLOOD PRESSURE SYSTOLIC ABNORMAL [None]
  - ECZEMA [None]
  - HEART RATE INCREASED [None]
  - NO THERAPEUTIC RESPONSE [None]
  - OEDEMA PERIPHERAL [None]
  - PALPITATIONS [None]
  - PUSTULAR PSORIASIS [None]
  - TACHYCARDIA [None]
  - URTICARIA [None]
